FAERS Safety Report 6818877-9 (Version None)
Quarter: 2010Q3

REPORT INFORMATION
  Report Type: 
  Country: None (occurrence: None)
  Receive Date: 20100707
  Receipt Date: 20090721
  Transmission Date: 20110219
  Serious: Yes (Other)
  Sender: FDA-Public Use
  Company Number: US-ASTRAZENECA-2007UW25650

PATIENT
  Age: 12443 Day
  Sex: Female
  Weight: 117.9 kg

DRUGS (9)
  1. SEROQUEL [Suspect]
     Route: 048
     Dates: start: 20040407
  2. EFFEXOR XR [Concomitant]
     Dates: start: 20041004
  3. LORTAB [Concomitant]
     Dosage: 5/500 TO 7.5/500 PO PRN.
     Dates: start: 20041004
  4. FLEXERIL [Concomitant]
     Dates: start: 20041004
  5. DIFLUCAN [Concomitant]
     Dates: start: 20040413
  6. COPAXONE [Concomitant]
     Dosage: 20MG/ML
     Dates: start: 20040410
  7. ZONEGRAN [Concomitant]
     Dates: start: 20040406
  8. CEPHALEXIN [Concomitant]
     Dates: start: 20040406
  9. PREDNISONE [Concomitant]
     Dates: start: 20040101

REACTIONS (2)
  - DIABETIC NEUROPATHY [None]
  - TYPE 2 DIABETES MELLITUS [None]
